FAERS Safety Report 20211254 (Version 2)
Quarter: 2022Q1

REPORT INFORMATION
  Report Type: Spontaneous
  Country: CA (occurrence: CA)
  Receive Date: 20211221
  Receipt Date: 20220125
  Transmission Date: 20220424
  Serious: Yes (Life-Threatening, Hospitalization, Other)
  Sender: FDA-Public Use
  Company Number: CA-TEVA-2021-CA-1991483

PATIENT
  Age: 67 Year
  Sex: Female

DRUGS (10)
  1. METHYLPREDNISOLONE [Suspect]
     Active Substance: METHYLPREDNISOLONE
     Indication: Angioedema
     Route: 042
  2. METHYLPREDNISOLONE [Suspect]
     Active Substance: METHYLPREDNISOLONE
     Route: 042
  3. RAMIPRIL [Suspect]
     Active Substance: RAMIPRIL
     Indication: Hypertension
     Route: 065
  4. DIPHENHYDRAMINE [Suspect]
     Active Substance: DIPHENHYDRAMINE
     Indication: Angioedema
     Route: 042
  5. DIPHENHYDRAMINE [Suspect]
     Active Substance: DIPHENHYDRAMINE
     Route: 042
  6. EPINEPHRINE [Suspect]
     Active Substance: EPINEPHRINE
     Indication: Angioedema
     Route: 065
  7. HUMAN C1-ESTERASE INHIBITOR [Suspect]
     Active Substance: HUMAN C1-ESTERASE INHIBITOR
     Indication: Angioedema
     Route: 065
  8. HUMAN C1-ESTERASE INHIBITOR [Suspect]
     Active Substance: HUMAN C1-ESTERASE INHIBITOR
     Route: 065
  9. ICATIBANT ACETATE [Suspect]
     Active Substance: ICATIBANT ACETATE
     Indication: Angioedema
     Route: 058
  10. ICATIBANT ACETATE [Suspect]
     Active Substance: ICATIBANT ACETATE
     Route: 058

REACTIONS (2)
  - Angioedema [Recovered/Resolved]
  - Off label use [Recovered/Resolved]
